FAERS Safety Report 8533823-8 (Version None)
Quarter: 2012Q3

REPORT INFORMATION
  Report Type: 
  Country: None (occurrence: None)
  Receive Date: 20120724
  Receipt Date: 20120720
  Transmission Date: 20120928
  Serious: Yes (Death)
  Sender: FDA-Public Use
  Company Number: PL-ROCHE-1079680

PATIENT
  Sex: Male
  Weight: 77 kg

DRUGS (3)
  1. EPIRUBICIN [Suspect]
     Indication: METASTATIC GASTRIC CANCER
     Route: 042
     Dates: start: 20101027, end: 20110406
  2. CAPECITABINE [Suspect]
     Indication: METASTATIC GASTRIC CANCER
     Dates: start: 20101027, end: 20110406
  3. OXALIPLATIN [Suspect]
     Indication: METASTATIC GASTRIC CANCER
     Route: 042
     Dates: start: 20101027, end: 20110406

REACTIONS (7)
  - POLYNEUROPATHY [None]
  - DISEASE PROGRESSION [None]
  - PALMAR-PLANTAR ERYTHRODYSAESTHESIA SYNDROME [None]
  - GENERAL PHYSICAL HEALTH DETERIORATION [None]
  - PLEURAL EFFUSION [None]
  - NEUTROPENIA [None]
  - DYSPNOEA [None]
